FAERS Safety Report 9928124 (Version 3)
Quarter: 2014Q3

REPORT INFORMATION
  Report Type: Spontaneous
  Country: US (occurrence: US)
  Receive Date: 20140227
  Receipt Date: 20140711
  Transmission Date: 20150326
  Serious: Yes (Death, Hospitalization, Disabling, Other)
  Sender: FDA-Public Use
  Company Number: US-009507513-1402USA012402

PATIENT
  Sex: Female
  Weight: 108.84 kg

DRUGS (4)
  1. JANUVIA [Suspect]
     Active Substance: SITAGLIPTIN PHOSPHATE
     Indication: TYPE 2 DIABETES MELLITUS
     Dosage: UNK
     Route: 048
     Dates: start: 20080701, end: 20100120
  2. VICTOZA [Suspect]
     Active Substance: LIRAGLUTIDE
     Dosage: 1.8 MG, QD
     Route: 058
     Dates: start: 201009, end: 201112
  3. BYETTA [Suspect]
     Active Substance: EXENATIDE
     Dosage: 5 MICROGRAM, QD
     Dates: start: 200701, end: 201009
  4. JANUMET [Suspect]
     Active Substance: METFORMIN HYDROCHLORIDE\SITAGLIPTIN PHOSPHATE
     Dosage: UNK
     Route: 048
     Dates: start: 20080701, end: 20091125

REACTIONS (32)
  - Rotator cuff repair [Unknown]
  - Insulin resistance [Unknown]
  - Blood pressure decreased [Unknown]
  - Oedema peripheral [Not Recovered/Not Resolved]
  - Treatment failure [Unknown]
  - Headache [Unknown]
  - Peripheral venous disease [Unknown]
  - Hypertension [Unknown]
  - Hysterectomy [Unknown]
  - Hyperinsulinaemia [Unknown]
  - Anaemia [Not Recovered/Not Resolved]
  - Deep vein thrombosis [Unknown]
  - Septic shock [Unknown]
  - Constipation [Unknown]
  - Hyperlipidaemia [Unknown]
  - Insomnia [Unknown]
  - Tremor [Unknown]
  - Ileus [Unknown]
  - Pleural effusion [Unknown]
  - Cancer pain [Unknown]
  - Drug ineffective [Unknown]
  - Cholecystectomy [Unknown]
  - Osteoporosis [Unknown]
  - Delirium [Unknown]
  - Small intestinal obstruction [Unknown]
  - Pancreatic carcinoma metastatic [Fatal]
  - Metastases to skin [Not Recovered/Not Resolved]
  - Metastases to liver [Unknown]
  - Multi-organ failure [Unknown]
  - Staphylococcal sepsis [Unknown]
  - Osteopenia [Unknown]
  - Adverse drug reaction [Unknown]

NARRATIVE: CASE EVENT DATE: 2011
